FAERS Safety Report 9375635 (Version 1)
Quarter: 2013Q2

REPORT INFORMATION
  Report Type: Spontaneous
  Country: CN (occurrence: CN)
  Receive Date: 20130628
  Receipt Date: 20130628
  Transmission Date: 20140414
  Serious: Yes (Other)
  Sender: FDA-Public Use
  Company Number: CN-ASTRAZENECA-2013SE45566

PATIENT
  Age: 32379 Day
  Sex: Male
  Weight: 60 kg

DRUGS (2)
  1. ROSUVASTATIN CALCIUM [Suspect]
     Indication: CEREBRAL INFARCTION
     Route: 048
     Dates: start: 20121116, end: 20121203
  2. AMLODIPINE BESYLATE [Concomitant]
     Indication: HYPERTENSION
     Route: 048
     Dates: start: 20121115, end: 20121213

REACTIONS (4)
  - Loss of consciousness [Recovered/Resolved]
  - Myoglobin blood increased [Recovering/Resolving]
  - Hepatic enzyme increased [Recovering/Resolving]
  - Blood creatine phosphokinase increased [Recovering/Resolving]
